FAERS Safety Report 17173864 (Version 1)
Quarter: 2019Q4

REPORT INFORMATION
  Report Type: Spontaneous
  Country: US (occurrence: US)
  Receive Date: 20191219
  Receipt Date: 20191219
  Transmission Date: 20200122
  Serious: No
  Sender: FDA-Public Use
  Company Number: US-PFIZER INC-2019542491

PATIENT
  Age: 88 Year
  Sex: Female
  Weight: 38.56 kg

DRUGS (1)
  1. TIKOSYN [Suspect]
     Active Substance: DOFETILIDE
     Indication: CARDIAC DISORDER
     Dosage: UNK, 2X/DAY
     Route: 048
     Dates: end: 201906

REACTIONS (1)
  - Drug ineffective [Unknown]
